FAERS Safety Report 16305666 (Version 1)
Quarter: 2019Q2

REPORT INFORMATION
  Report Type: Spontaneous
  Country: US (occurrence: US)
  Receive Date: 20190513
  Receipt Date: 20190513
  Transmission Date: 20190711
  Serious: No
  Sender: FDA-Public Use
  Company Number: US-HORIZON-PEN-0467-2019

PATIENT
  Age: 82 Year
  Sex: Female

DRUGS (1)
  1. PENNSAID [Suspect]
     Active Substance: DICLOFENAC SODIUM
     Indication: ARTHRITIS
     Dosage: 2 PUMPS BID

REACTIONS (4)
  - Inability to afford medication [Not Recovered/Not Resolved]
  - Therapy cessation [Not Recovered/Not Resolved]
  - Insurance issue [Not Recovered/Not Resolved]
  - Arthralgia [Not Recovered/Not Resolved]
